FAERS Safety Report 14457251 (Version 1)
Quarter: 2018Q1

REPORT INFORMATION
  Report Type: Spontaneous
  Country: GB (occurrence: GB)
  Receive Date: 20180130
  Receipt Date: 20180130
  Transmission Date: 20180509
  Serious: Yes (Other)
  Sender: FDA-Public Use
  Company Number: GB-AUROBINDO-AUR-APL-2018-003847

PATIENT
  Age: 70 Year
  Sex: Male

DRUGS (2)
  1. DUODOPA [Suspect]
     Active Substance: CARBIDOPA\LEVODOPA
     Indication: PARKINSON^S DISEASE
     Dosage: 100 ML CASSETTE IN A DAY, INTESTINAL GEL
     Route: 065
  2. METRONIDAZOLE. [Suspect]
     Active Substance: METRONIDAZOLE
     Indication: STOMA SITE INFECTION
     Dosage: UNK
     Route: 065

REACTIONS (10)
  - Stoma site infection [Recovering/Resolving]
  - Stoma site discharge [Unknown]
  - Gait disturbance [Unknown]
  - Mobility decreased [Unknown]
  - Stoma site haemorrhage [Unknown]
  - Stoma site erythema [Unknown]
  - Paraesthesia [Unknown]
  - Wrong technique in device usage process [Unknown]
  - Stoma site inflammation [Unknown]
  - Stoma site pain [Unknown]

NARRATIVE: CASE EVENT DATE: 201711
